FAERS Safety Report 17768231 (Version 3)
Quarter: 2020Q2

REPORT INFORMATION
  Report Type: Spontaneous
  Country: US (occurrence: US)
  Receive Date: 20200511
  Receipt Date: 20200617
  Transmission Date: 20200714
  Serious: Yes (Death, Hospitalization)
  Sender: FDA-Public Use
  Company Number: US-ENDO PHARMACEUTICALS INC-2020-003547

PATIENT
  Age: 41 Year
  Sex: Male

DRUGS (22)
  1. KETALAR [Suspect]
     Active Substance: KETAMINE HYDROCHLORIDE
     Dosage: 1.8 MG/KG/HOUR, ON HOSPITAL DAY 36, UP-TITRATED BY 1.8 MG/KG/HR EVERY FIVE MINUTES
     Route: 065
  2. KETALAR [Suspect]
     Active Substance: KETAMINE HYDROCHLORIDE
     Dosage: 1.5 MG/KG/HOUR, MAINTANACE DOSE
     Route: 065
  3. KETALAR [Suspect]
     Active Substance: KETAMINE HYDROCHLORIDE
     Dosage: 3 TO 4 MG/KG/HOUR, ON HOSPITAL DAY 25 (KETAMINE DAY TEN)
     Route: 065
  4. OXCARBAZEPINE. [Concomitant]
     Active Substance: OXCARBAZEPINE
     Indication: STATUS EPILEPTICUS
  5. MIDAZOLAM. [Suspect]
     Active Substance: MIDAZOLAM
     Dosage: UNK, UNKNOWN, INFUSION, RESTARTED ON DAY 36
     Route: 065
  6. PROPOFOL. [Concomitant]
     Active Substance: PROPOFOL
     Indication: STATUS EPILEPTICUS
  7. LORAZEPAM. [Concomitant]
     Active Substance: LORAZEPAM
     Indication: STATUS EPILEPTICUS
  8. KETALAR [Suspect]
     Active Substance: KETAMINE HYDROCHLORIDE
     Dosage: 4 MG/KG/HOUR, TWO DAYS LATER, UP-TITRATION OF KETAMINE
     Route: 065
  9. CLOBAZAM. [Concomitant]
     Active Substance: CLOBAZAM
     Indication: STATUS EPILEPTICUS
  10. KETALAR [Suspect]
     Active Substance: KETAMINE HYDROCHLORIDE
     Indication: STATUS EPILEPTICUS
     Dosage: 3 MG/KG, BOLUS, ON HOSPITAL DAY 16
     Route: 065
  11. MIDAZOLAM. [Suspect]
     Active Substance: MIDAZOLAM
     Indication: STATUS EPILEPTICUS
     Dosage: UNK UNKNOWN, INFUSION
     Route: 065
  12. GABAPENTIN. [Concomitant]
     Active Substance: GABAPENTIN
     Indication: STATUS EPILEPTICUS
  13. TOPIRAMATE. [Concomitant]
     Active Substance: TOPIRAMATE
     Indication: STATUS EPILEPTICUS
  14. CARBAMAZEPINE. [Concomitant]
     Active Substance: CARBAMAZEPINE
     Indication: STATUS EPILEPTICUS
  15. LACOSAMIDE. [Concomitant]
     Active Substance: LACOSAMIDE
     Indication: STATUS EPILEPTICUS
  16. KETALAR [Suspect]
     Active Substance: KETAMINE HYDROCHLORIDE
     Dosage: 0.5 MG/KG/HOUR, UPTITRATION FROM 1.5 MG/KG/HR UNTIL THE EEG SHOWED BURST SUPRESSION
     Route: 065
  17. KETALAR [Suspect]
     Active Substance: KETAMINE HYDROCHLORIDE
     Dosage: 7.2 MG/KG/HOUR, INFUSION UPTITRATED FROM 1.8 MG/KG/HR
     Route: 065
  18. PHENYTOIN. [Concomitant]
     Active Substance: PHENYTOIN
     Indication: STATUS EPILEPTICUS
  19. FOSPHENYTOIN [Concomitant]
     Active Substance: FOSPHENYTOIN
     Indication: STATUS EPILEPTICUS
  20. LIDOCAINE. [Concomitant]
     Active Substance: LIDOCAINE
     Indication: STATUS EPILEPTICUS
  21. VALPROIC ACID. [Concomitant]
     Active Substance: VALPROIC ACID
     Indication: STATUS EPILEPTICUS
  22. LEVETIRACETAM. [Concomitant]
     Active Substance: LEVETIRACETAM
     Indication: STATUS EPILEPTICUS

REACTIONS (3)
  - Metabolic acidosis [Fatal]
  - Circulatory collapse [Fatal]
  - Off label use [Recovered/Resolved]
